FAERS Safety Report 8185990-6 (Version None)
Quarter: 2012Q1

REPORT INFORMATION
  Report Type: 
  Country: None (occurrence: None)
  Receive Date: 20120306
  Receipt Date: 20120223
  Transmission Date: 20120608
  Serious: Yes (Hospitalization)
  Sender: FDA-Public Use
  Company Number: FR-BRISTOL-MYERS SQUIBB COMPANY-16418006

PATIENT
  Age: 62 Year
  Sex: Male

DRUGS (8)
  1. ATORVASTATIN [Concomitant]
  2. METFORMIN HCL [Concomitant]
  3. LANSOPRAZOLE [Concomitant]
  4. ATACAND [Concomitant]
  5. GLYBURIDE [Concomitant]
  6. ASPIRIN [Concomitant]
  7. ONGLYZA [Suspect]
     Indication: DIABETES MELLITUS INADEQUATE CONTROL
     Route: 048
     Dates: start: 20110401, end: 20120126
  8. ATENOLOL AND CHLORTHALIDONE [Concomitant]

REACTIONS (2)
  - DERMATITIS BULLOUS [None]
  - ERYSIPELAS [None]
